FAERS Safety Report 7952131-7 (Version None)
Quarter: 2011Q4

REPORT INFORMATION
  Report Type: 
  Country: None (occurrence: None)
  Receive Date: 20111201
  Receipt Date: 20111118
  Transmission Date: 20120403
  Serious: Yes (Other)
  Sender: FDA-Public Use
  Company Number: PHHY2011JP88389

PATIENT
  Sex: Female
  Weight: 49 kg

DRUGS (8)
  1. DIOVAN [Suspect]
     Dosage: 80 MG, UNK
  2. LIPITOR [Concomitant]
     Dosage: 5 MG, UNK
     Route: 048
     Dates: start: 20041127
  3. TICLOPIDINE HYDROCHLORIDE [Concomitant]
     Dosage: 100 MG, UNK
     Route: 048
     Dates: start: 20040108, end: 20100823
  4. TOYOFAROL [Concomitant]
     Dosage: 1.5 UG, UNK
     Route: 048
     Dates: start: 19990201
  5. DIOVAN HCT [Suspect]
     Indication: HYPERTENSION
     Dosage: 1 DF, QD
     Route: 048
     Dates: start: 20100601
  6. ZOVIRAX [Suspect]
     Dosage: UNK
  7. LEVOTHYROXINE SODIUM [Concomitant]
     Dosage: 125 UG, UNK
     Route: 048
     Dates: start: 19990201
  8. PLAVIX [Concomitant]
     Dosage: 50 MG, UNK
     Route: 048
     Dates: start: 20100824

REACTIONS (3)
  - HERPES ZOSTER [None]
  - CEREBRAL INFARCTION [None]
  - RENAL IMPAIRMENT [None]
